FAERS Safety Report 15429693 (Version 7)
Quarter: 2019Q2

REPORT INFORMATION
  Report Type: Spontaneous
  Country: US (occurrence: US)
  Receive Date: 20180926
  Receipt Date: 20190422
  Transmission Date: 20190711
  Serious: Yes (Other)
  Sender: FDA-Public Use
  Company Number: US-BRISTOL-MYERS SQUIBB COMPANY-BMS-2018-089471

PATIENT
  Sex: Male
  Weight: 109.3 kg

DRUGS (1)
  1. ORENCIA [Suspect]
     Active Substance: ABATACEPT
     Indication: RHEUMATOID ARTHRITIS
     Dosage: 125 MG, QWK
     Route: 058
     Dates: start: 201809

REACTIONS (6)
  - Sinusitis [Unknown]
  - Pharyngitis streptococcal [Unknown]
  - Diverticulitis [Unknown]
  - Oral herpes [Not Recovered/Not Resolved]
  - Pyrexia [Unknown]
  - Pharyngitis [Unknown]
